FAERS Safety Report 12860839 (Version 2)
Quarter: 2016Q4

REPORT INFORMATION
  Report Type: Report from Study
  Country: US (occurrence: US)
  Receive Date: 20161019
  Receipt Date: 20161030
  Transmission Date: 20170207
  Serious: Yes (Other)
  Sender: FDA-Public Use
  Company Number: US-ASTRAZENECA-2015SE32935

PATIENT
  Age: 832 Month
  Sex: Female
  Weight: 81.2 kg

DRUGS (5)
  1. SMZ [Concomitant]
     Active Substance: SULFAMETHOXAZOLE\TRIMETHOPRIM
     Indication: CYSTITIS
     Route: 065
     Dates: start: 2003
  2. PROGRAFT [Concomitant]
     Active Substance: TACROLIMUS
     Indication: TRANSPLANT REJECTION
     Route: 065
     Dates: start: 2003
  3. CELLCEPT [Concomitant]
     Active Substance: MYCOPHENOLATE MOFETIL\MYCOPHENOLATE MOFETIL HYDROCHLORIDE
     Indication: TRANSPLANT REJECTION
     Route: 065
     Dates: start: 2003
  4. SYMBICORT [Suspect]
     Active Substance: BUDESONIDE\FORMOTEROL FUMARATE DIHYDRATE
     Indication: CHRONIC OBSTRUCTIVE PULMONARY DISEASE
     Dosage: 2 PUFFS  TWO TIMES A DAY
     Route: 055
     Dates: start: 201407
  5. SMZ [Concomitant]
     Active Substance: SULFAMETHOXAZOLE\TRIMETHOPRIM
     Indication: PNEUMONIA
     Route: 065
     Dates: start: 2003

REACTIONS (6)
  - Drug dose omission [Unknown]
  - Intentional product misuse [Unknown]
  - Vision blurred [Unknown]
  - Oxygen consumption increased [Unknown]
  - Neoplasm malignant [Unknown]
  - Pain [Unknown]

NARRATIVE: CASE EVENT DATE: 201407
